FAERS Safety Report 7245390-X (Version None)
Quarter: 2011Q1

REPORT INFORMATION
  Report Type: 
  Country: None (occurrence: None)
  Receive Date: 20110126
  Receipt Date: 20110117
  Transmission Date: 20110831
  Serious: Yes (Death, Other)
  Sender: FDA-Public Use
  Company Number: US-AMGEN-US360008

PATIENT
  Age: 52 Year
  Sex: Female

DRUGS (1)
  1. NPLATE [Suspect]
     Indication: IDIOPATHIC THROMBOCYTOPENIC PURPURA
     Dosage: UNK UNK, UNK
     Route: 065
     Dates: start: 20090701

REACTIONS (2)
  - DRUG INEFFECTIVE [None]
  - ACUTE LEUKAEMIA [None]
